FAERS Safety Report 6136296-8 (Version None)
Quarter: 2009Q1

REPORT INFORMATION
  Report Type: 
  Country: None (occurrence: None)
  Receive Date: 20090325
  Receipt Date: 20090316
  Transmission Date: 20090719
  Serious: Yes (Death, Hospitalization, Other)
  Sender: FDA-Public Use
  Company Number: 232911K09USA

PATIENT
  Age: 52 Year
  Sex: Female

DRUGS (1)
  1. REBIF [Suspect]
     Indication: MULTIPLE SCLEROSIS
     Dosage: 44 MCG, 3 IN 1 WEEKS, SUBCUTANEOUS
     Route: 058
     Dates: start: 20040101, end: 20090314

REACTIONS (7)
  - ARTHROPATHY [None]
  - CARDIAC DISORDER [None]
  - NERVE INJURY [None]
  - PAIN [None]
  - RESPIRATORY TRACT INFECTION [None]
  - UNRESPONSIVE TO STIMULI [None]
  - VASCULAR INJURY [None]
